FAERS Safety Report 12556471 (Version 1)
Quarter: 2016Q3

REPORT INFORMATION
  Report Type: Spontaneous
  Country: US (occurrence: None)
  Receive Date: 20160713
  Receipt Date: 20160713
  Transmission Date: 20161109
  Serious: No
  Sender: FDA-Public Use
  Company Number: None

PATIENT
  Age: 64 Year
  Sex: Male
  Weight: 71.67 kg

DRUGS (24)
  1. NALTREXONE 50MG 2X DAILY MALLINCKRODT [Suspect]
     Active Substance: NALTREXONE
     Indication: ALCOHOLISM
     Route: 048
     Dates: start: 20160616
  2. BUSPIRONE [Concomitant]
     Active Substance: BUSPIRONE HYDROCHLORIDE
  3. VITAMIN B12 [Concomitant]
     Active Substance: CYANOCOBALAMIN
  4. MAGNESIUM CITRATE. [Concomitant]
     Active Substance: MAGNESIUM CITRATE
  5. VITIAM E [Concomitant]
  6. ALRRAZOLAM [Concomitant]
  7. CALSOPRODOL [Concomitant]
  8. VOLTAREN [Concomitant]
     Active Substance: DICLOFENAC SODIUM
  9. SUPER ALOE [Concomitant]
  10. CHLORDIAZEPOXIDE/CLIDINIUM [Concomitant]
     Active Substance: CHLORDIAZEPOXIDE\CLIDINIUM
  11. SIMVATATIN [Concomitant]
  12. IODINE. [Concomitant]
     Active Substance: IODINE
  13. MAGNESIUM OIL [Concomitant]
  14. WALGREENS NATURAL FIBER [Concomitant]
  15. COCONUT OIL [Concomitant]
     Active Substance: COCONUT OIL
  16. HYDROCODONE [Concomitant]
     Active Substance: HYDROCODONE
  17. NALTREXONE [Concomitant]
     Active Substance: NALTREXONE
  18. LEVOTHYROXINE. [Concomitant]
     Active Substance: LEVOTHYROXINE
  19. VITAMIN D3 [Concomitant]
     Active Substance: CHOLECALCIFEROL
  20. EXCEDRIN X-TRA STRENGTH [Concomitant]
  21. ASPIRIN. [Concomitant]
     Active Substance: ASPIRIN
  22. CITALOOPRAM [Concomitant]
  23. DICLOFENAC SODIUM GEL [Concomitant]
     Active Substance: DICLOFENAC SODIUM
  24. ALPHASORB-C [Concomitant]

REACTIONS (1)
  - Hypersomnia [None]

NARRATIVE: CASE EVENT DATE: 20160606
